FAERS Safety Report 14694519 (Version 1)
Quarter: 2018Q1

REPORT INFORMATION
  Report Type: Spontaneous
  Country: US (occurrence: US)
  Receive Date: 20180329
  Receipt Date: 20180329
  Transmission Date: 20180509
  Serious: Yes (Death, Hospitalization, Other)
  Sender: FDA-Public Use
  Company Number: US-SEATTLE GENETICS-2018SGN00740

PATIENT
  Age: 59 Year
  Sex: Female

DRUGS (1)
  1. ADCETRIS [Suspect]
     Active Substance: BRENTUXIMAB VEDOTIN
     Indication: ANGIOIMMUNOBLASTIC T-CELL LYMPHOMA
     Route: 065

REACTIONS (6)
  - Pneumonia [Unknown]
  - Pericardial effusion [Unknown]
  - Sepsis [Unknown]
  - Off label use [Unknown]
  - Cardio-respiratory arrest [Fatal]
  - Hypotension [Unknown]
